FAERS Safety Report 4524814-2 (Version None)
Quarter: 2004Q4

REPORT INFORMATION
  Report Type: 
  Country: None (occurrence: None)
  Receive Date: 20041209
  Receipt Date: 20041209
  Transmission Date: 20050328
  Serious: Yes (Other)
  Sender: FDA-Public Use
  Company Number: None

PATIENT
  Sex: Male
  Weight: 70.3075 kg

DRUGS (4)
  1. LIPITOR [Suspect]
     Indication: BLOOD CHOLESTEROL INCREASED
     Dosage: 10MG DAILY ORAL
     Route: 048
     Dates: start: 20040505, end: 20040705
  2. LIPITOR [Suspect]
     Indication: LOW DENSITY LIPOPROTEIN INCREASED
     Dosage: 10MG DAILY ORAL
     Route: 048
     Dates: start: 20040505, end: 20040705
  3. FIRIONAL [Concomitant]
  4. FIROSETH [Concomitant]

REACTIONS (2)
  - MUSCLE DISORDER [None]
  - MYALGIA [None]
